FAERS Safety Report 8771994 (Version 2)
Quarter: 2012Q4

REPORT INFORMATION
  Report Type: 
  Country: DE (occurrence: DE)
  Receive Date: 20120905
  Receipt Date: 20120905
  Transmission Date: 20130627
  Serious: Yes (Other)
  Sender: FDA-Public Use
  Company Number: PHHY2012DE031238

PATIENT
  Age: 71 Year
  Sex: Female

DRUGS (3)
  1. EVEROLIMUS [Suspect]
     Dosage: 3 mg, UNK
     Dates: start: 2005
  2. MYCOPHENOLATE MOFETIL [Concomitant]
     Indication: IMMUNOSUPPRESSION
     Dosage: 2 mg, UNK
  3. PREDNISOLONE [Concomitant]
     Indication: IMMUNOSUPPRESSION
     Dosage: 3 mg, UNK

REACTIONS (10)
  - Complications of transplanted heart [Unknown]
  - Normochromic normocytic anaemia [Unknown]
  - Exostosis [Unknown]
  - Arthralgia [Unknown]
  - Pyrexia [Recovered/Resolved]
  - Night sweats [Recovered/Resolved]
  - Chills [Unknown]
  - Fatigue [Unknown]
  - Decreased appetite [Unknown]
  - Asthenia [Unknown]
